FAERS Safety Report 6416326-6 (Version None)
Quarter: 2009Q4

REPORT INFORMATION
  Report Type: 
  Country: None (occurrence: None)
  Receive Date: 20091027
  Receipt Date: 20091020
  Transmission Date: 20100525
  Serious: Yes (Disabling)
  Sender: FDA-Public Use
  Company Number: JP-ASTRAZENECA-2009SE20590

PATIENT
  Age: 90 Year
  Sex: Female

DRUGS (4)
  1. ARIMIDEX [Suspect]
     Indication: BREAST CANCER
     Route: 048
     Dates: start: 20060301, end: 20070308
  2. ARIMIDEX [Suspect]
     Route: 048
     Dates: start: 20070427, end: 20090717
  3. NOLVADEX [Concomitant]
     Indication: BREAST CANCER
     Route: 048
     Dates: start: 20030901, end: 20060301
  4. NOLVADEX [Concomitant]
     Route: 048
     Dates: start: 20070309, end: 20070426

REACTIONS (1)
  - CEREBRAL INFARCTION [None]
